FAERS Safety Report 10898321 (Version 1)
Quarter: 2015Q1

REPORT INFORMATION
  Report Type: Spontaneous
  Country: US (occurrence: None)
  Receive Date: 20150302
  Receipt Date: 20150302
  Transmission Date: 20150721
  Serious: No
  Sender: FDA-Public Use
  Company Number: None

PATIENT
  Age: 46 Year
  Sex: Female
  Weight: 81.65 kg

DRUGS (1)
  1. LATUDA [Suspect]
     Active Substance: LURASIDONE HYDROCHLORIDE
     Indication: BIPOLAR DISORDER
     Dosage: 1
     Route: 048
     Dates: start: 20150223, end: 20150226

REACTIONS (4)
  - Visual impairment [None]
  - Eyelid oedema [None]
  - Photophobia [None]
  - Sleep terror [None]

NARRATIVE: CASE EVENT DATE: 20150225
